FAERS Safety Report 6778878-6 (Version None)
Quarter: 2010Q2

REPORT INFORMATION
  Report Type: 
  Country: None (occurrence: None)
  Receive Date: 20100618
  Receipt Date: 20100518
  Transmission Date: 20101027
  Serious: No
  Sender: FDA-Public Use
  Company Number: US-BAYER-201015774BCC

PATIENT
  Sex: Male
  Weight: 86 kg

DRUGS (5)
  1. ALEVE (CAPLET) [Suspect]
     Indication: PAIN
     Route: 048
  2. ONE A DAY MEN'S HEALTH [Suspect]
     Indication: DRUG USE FOR UNKNOWN INDICATION
     Route: 048
  3. BEER [Concomitant]
     Dosage: 2 TO 3 BEERS PER DAY
     Route: 048
  4. B-VITAMIN COMPLEX [Concomitant]
     Route: 048
  5. B-VITAMIN COMPLEX [Concomitant]
     Route: 048

REACTIONS (3)
  - FLATULENCE [None]
  - GASTRIC PH DECREASED [None]
  - HEADACHE [None]
